FAERS Safety Report 10416746 (Version 1)
Quarter: 2014Q3

REPORT INFORMATION
  Report Type: Spontaneous
  Country: NL (occurrence: NL)
  Receive Date: 20140828
  Receipt Date: 20140828
  Transmission Date: 20150326
  Serious: Yes (Other)
  Sender: FDA-Public Use
  Company Number: NL-PFIZER INC-2014235251

PATIENT
  Age: 49 Year
  Sex: Female
  Weight: 60 kg

DRUGS (1)
  1. CLINDAMYCIN HCL [Suspect]
     Active Substance: CLINDAMYCIN HYDROCHLORIDE
     Indication: BREAST INFLAMMATION
     Dosage: 600 MG, 3X/DAY
     Dates: start: 20130104, end: 20130119

REACTIONS (23)
  - Headache [Recovering/Resolving]
  - Dry eye [Recovering/Resolving]
  - Dysgeusia [Recovering/Resolving]
  - Memory impairment [Recovering/Resolving]
  - Fatigue [Recovering/Resolving]
  - Oedema peripheral [Recovering/Resolving]
  - Diarrhoea [Recovering/Resolving]
  - Dysphagia [Recovering/Resolving]
  - Ocular icterus [Recovering/Resolving]
  - Thirst [Recovering/Resolving]
  - Cough [Recovering/Resolving]
  - Pruritus genital [Recovering/Resolving]
  - Lip disorder [Recovering/Resolving]
  - Dental caries [Recovering/Resolving]
  - Respiratory disorder [Recovering/Resolving]
  - Oropharyngeal pain [Recovering/Resolving]
  - Coordination abnormal [Recovering/Resolving]
  - Herpes simplex [Recovering/Resolving]
  - Angioedema [Recovering/Resolving]
  - Nasopharyngitis [Recovering/Resolving]
  - Muscular weakness [Recovering/Resolving]
  - Hyperhidrosis [Recovering/Resolving]
  - Gingival bleeding [Recovering/Resolving]

NARRATIVE: CASE EVENT DATE: 20130104
